FAERS Safety Report 23844165 (Version 1)
Quarter: 2024Q2

REPORT INFORMATION
  Report Type: Spontaneous
  Country: US (occurrence: US)
  Receive Date: 20240510
  Receipt Date: 20240510
  Transmission Date: 20240715
  Serious: No
  Sender: FDA-Public Use
  Company Number: US-SA-SAC20240501001527

PATIENT
  Sex: Male

DRUGS (1)
  1. DUPIXENT [Suspect]
     Active Substance: DUPILUMAB
     Indication: Asthma
     Dosage: INJECT 1 PEN (300 MG) UNDER THE SKIN EVERY OTHER WEEK
     Route: 058
     Dates: start: 2019

REACTIONS (1)
  - Asthma [Recovered/Resolved]
